FAERS Safety Report 18395089 (Version 2)
Quarter: 2020Q4

REPORT INFORMATION
  Report Type: Spontaneous
  Country: IT (occurrence: IT)
  Receive Date: 20201016
  Receipt Date: 20201215
  Transmission Date: 20210114
  Serious: Yes (Death)
  Sender: FDA-Public Use
  Company Number: IT-US-PROVELL PHARMACEUTICALS LLC-E2B_90080786

PATIENT
  Age: 49 Year
  Sex: Female
  Weight: 22 kg

DRUGS (7)
  1. RIVOTRIL [Concomitant]
     Active Substance: CLONAZEPAM
     Indication: MENTAL DISORDER
     Route: 048
  2. EUTIROX [Suspect]
     Active Substance: LEVOTHYROXINE SODIUM
     Indication: HYPOTHYROIDISM
     Route: 048
     Dates: start: 20181030, end: 20181030
  3. LYRICA [Concomitant]
     Active Substance: PREGABALIN
     Indication: MENTAL DISORDER
     Route: 048
  4. SERENASE                           /00027401/ [Concomitant]
     Active Substance: HALOPERIDOL
     Indication: MENTAL DISORDER
     Route: 048
  5. SERTRALINE [Concomitant]
     Active Substance: SERTRALINE HYDROCHLORIDE
     Indication: MENTAL DISORDER
     Route: 048
  6. DENIBAN [Concomitant]
     Active Substance: AMISULPRIDE
     Indication: MENTAL DISORDER
     Route: 048
  7. ZOLPIDEM TARTRATE. [Concomitant]
     Active Substance: ZOLPIDEM TARTRATE
     Indication: MENTAL DISORDER
     Route: 048

REACTIONS (9)
  - Hypokalaemia [Fatal]
  - Ecchymosis [Fatal]
  - Sopor [Fatal]
  - Drug abuse [Fatal]
  - Asthenia [Fatal]
  - Hyperlipasaemia [Fatal]
  - Gait inability [Fatal]
  - Weight decreased [Fatal]
  - Fall [Fatal]

NARRATIVE: CASE EVENT DATE: 20181030
